FAERS Safety Report 15754750 (Version 1)
Quarter: 2018Q4

REPORT INFORMATION
  Report Type: Spontaneous
  Country: US (occurrence: US)
  Receive Date: 20181224
  Receipt Date: 20181224
  Transmission Date: 20190205
  Serious: No
  Sender: FDA-Public Use
  Company Number: US-TEVA-2018-US-987686

PATIENT
  Age: 54 Year
  Sex: Female

DRUGS (1)
  1. IRINOTECAN HYDROCHLORIDE ACTAVIS [Suspect]
     Active Substance: IRINOTECAN HYDROCHLORIDE
     Route: 065

REACTIONS (1)
  - White blood cell count increased [Unknown]
